FAERS Safety Report 11293094 (Version 1)
Quarter: 2015Q3

REPORT INFORMATION
  Report Type: Spontaneous
  Country: US (occurrence: US)
  Receive Date: 20150722
  Receipt Date: 20150722
  Transmission Date: 20151125
  Serious: No
  Sender: FDA-Public Use
  Company Number: US-MARKSANS PHARMA LIMITED-1040648

PATIENT
  Age: 57 Year
  Sex: Male

DRUGS (1)
  1. IBUPROFEN. [Suspect]
     Active Substance: IBUPROFEN
     Indication: ANALGESIC THERAPY
     Route: 048
     Dates: start: 20150616, end: 20150618

REACTIONS (2)
  - Drug ineffective [Recovered/Resolved]
  - Product substitution issue [None]

NARRATIVE: CASE EVENT DATE: 20150616
